FAERS Safety Report 19443644 (Version 1)
Quarter: 2021Q2

REPORT INFORMATION
  Report Type: Spontaneous
  Country: CN (occurrence: CN)
  Receive Date: 20210621
  Receipt Date: 20210621
  Transmission Date: 20210717
  Serious: Yes (Other)
  Sender: FDA-Public Use
  Company Number: CN-PFIZER INC-2021672591

PATIENT
  Age: 39 Year
  Sex: Male

DRUGS (1)
  1. VFEND [Suspect]
     Active Substance: VORICONAZOLE
     Indication: BRONCHOPULMONARY ASPERGILLOSIS
     Dosage: 0.200 G, TWICE A DAY [EVERY 12 HOURS (Q12H)]
     Route: 041
     Dates: start: 20210528, end: 20210602

REACTIONS (3)
  - Drug level above therapeutic [Recovering/Resolving]
  - Restlessness [Unknown]
  - Delirium [Recovering/Resolving]

NARRATIVE: CASE EVENT DATE: 20210531
